FAERS Safety Report 10544805 (Version 1)
Quarter: 2014Q4

REPORT INFORMATION
  Report Type: Spontaneous
  Country: GB (occurrence: None)
  Receive Date: 20141016
  Receipt Date: 20141016
  Transmission Date: 20150529
  Serious: Yes (Hospitalization)
  Sender: FDA-Public Use
  Company Number: 2014GMK010867

PATIENT
  Age: 85 Year

DRUGS (13)
  1. OXYBUTYNIN [Concomitant]
     Active Substance: OXYBUTYNIN
  2. PARACETAMOL [Concomitant]
     Active Substance: ACETAMINOPHEN
  3. RAMIPRIL. [Concomitant]
     Active Substance: RAMIPRIL
  4. ASPIRN(ACETYLSALICYLIC ACID) [Concomitant]
  5. CLOPIDOGREL [Concomitant]
     Active Substance: CLOPIDOGREL BISULFATE
  6. RANITIDINE [Concomitant]
     Active Substance: RANITIDINE\RANITIDINE HYDROCHLORIDE
  7. SIMVASTATIN. [Concomitant]
     Active Substance: SIMVASTATIN
  8. GABAPENTIN. [Suspect]
     Active Substance: GABAPENTIN
     Dates: start: 20140721
  9. NITRAZEPAM [Concomitant]
     Active Substance: NITRAZEPAM
  10. METFORMIN [Concomitant]
     Active Substance: METFORMIN HYDROCHLORIDE
  11. QUININE [Concomitant]
     Active Substance: QUININE
  12. ADCAL D3(CALCIUM CARBONATE, COLECALCIFEROL) [Concomitant]
  13. NITROFURANTOIN. [Concomitant]
     Active Substance: NITROFURANTOIN

REACTIONS (1)
  - Syncope [None]
